FAERS Safety Report 16052371 (Version 1)
Quarter: 2019Q1

REPORT INFORMATION
  Report Type: Spontaneous
  Country: FR (occurrence: FR)
  Receive Date: 20190308
  Receipt Date: 20190308
  Transmission Date: 20190418
  Serious: Yes (Other)
  Sender: FDA-Public Use
  Company Number: FR-009507513-1902FRA011197

PATIENT
  Age: 65 Year
  Sex: Male

DRUGS (1)
  1. CHIBRO-PROSCAR [Suspect]
     Active Substance: FINASTERIDE
     Indication: PROSTATIC ADENOMA
     Dosage: 5 MILLIGRAM
     Route: 048

REACTIONS (5)
  - Drug ineffective [Unknown]
  - Mental disorder [Unknown]
  - Malaise [Unknown]
  - Drug dependence [Unknown]
  - Adverse event [Unknown]
